FAERS Safety Report 19174585 (Version 1)
Quarter: 2021Q2

REPORT INFORMATION
  Report Type: Spontaneous
  Country: US (occurrence: US)
  Receive Date: 20210423
  Receipt Date: 20210423
  Transmission Date: 20210717
  Serious: No
  Sender: FDA-Public Use
  Company Number: US-JNJFOC-20210431773

PATIENT
  Sex: Female

DRUGS (1)
  1. STELARA [Suspect]
     Active Substance: USTEKINUMAB
     Indication: PRODUCT USED FOR UNKNOWN INDICATION
     Route: 042
     Dates: start: 20210409, end: 20210409

REACTIONS (4)
  - Skin warm [Unknown]
  - Infusion related reaction [Unknown]
  - Arthralgia [Unknown]
  - Tachycardia [Unknown]

NARRATIVE: CASE EVENT DATE: 20210409
